FAERS Safety Report 5711359-7 (Version None)
Quarter: 2008Q2

REPORT INFORMATION
  Report Type: 
  Country: None (occurrence: None)
  Receive Date: 20080421
  Receipt Date: 20080414
  Transmission Date: 20081010
  Serious: Yes (Other)
  Sender: FDA-Public Use
  Company Number: B0516802A

PATIENT
  Age: 40 Year
  Sex: Female

DRUGS (2)
  1. TYVERB [Suspect]
     Route: 048
  2. XELODA [Concomitant]
     Route: 048

REACTIONS (3)
  - DRY SKIN [None]
  - PALMAR-PLANTAR ERYTHRODYSAESTHESIA SYNDROME [None]
  - SKIN EXFOLIATION [None]
